FAERS Safety Report 9346959 (Version 1)
Quarter: 2013Q2

REPORT INFORMATION
  Report Type: Report from Study
  Country: US (occurrence: US)
  Receive Date: 20130613
  Receipt Date: 20130613
  Transmission Date: 20140414
  Serious: Yes (Hospitalization, Other)
  Sender: FDA-Public Use
  Company Number: US-ABBOTT-13P-163-1100247-00

PATIENT
  Age: 56 Year
  Sex: Male

DRUGS (11)
  1. HUMIRA [Suspect]
     Indication: CROHN^S DISEASE
     Route: 058
  2. HUMIRA [Suspect]
     Dates: start: 201208, end: 20130427
  3. QUESTRAN [Concomitant]
     Indication: GASTRIC DISORDER
  4. COMPAZINE [Concomitant]
     Indication: NAUSEA
  5. MULTIVITAMIN [Concomitant]
     Indication: PRODUCT USED FOR UNKNOWN INDICATION
     Dosage: ONCE DAILY FOR YEARS
  6. IMURAN [Concomitant]
     Indication: PRODUCT USED FOR UNKNOWN INDICATION
     Dates: start: 201208
  7. WELCHOL [Concomitant]
     Indication: DIARRHOEA
     Dosage: 1 - 2 DAILY
     Dates: start: 2012
  8. CARAFATE [Concomitant]
     Indication: GASTRIC DISORDER
     Dates: start: 201302
  9. IMODIUM [Concomitant]
     Indication: DIARRHOEA
  10. LOMOTIL [Concomitant]
     Indication: DIARRHOEA
  11. ZOFRAN [Concomitant]
     Indication: NAUSEA
     Dates: start: 201208

REACTIONS (27)
  - Duodenal obstruction [Unknown]
  - Duodenal perforation [Unknown]
  - Chest pain [Unknown]
  - Dehydration [Unknown]
  - Nausea [Unknown]
  - Vomiting [Unknown]
  - Fatigue [Unknown]
  - Dizziness [Unknown]
  - Decreased appetite [Unknown]
  - Amnesia [Unknown]
  - Overgrowth bacterial [Unknown]
  - Asthenia [Unknown]
  - Dysstasia [Unknown]
  - Euphoric mood [Unknown]
  - Hallucination [Unknown]
  - Tremor [Unknown]
  - Feeling of body temperature change [Unknown]
  - Pyrexia [Unknown]
  - Dizziness [Unknown]
  - Activities of daily living impaired [Unknown]
  - Fatigue [Unknown]
  - Decreased appetite [Unknown]
  - Diarrhoea [Unknown]
  - Blood glucose increased [Unknown]
  - Feeling abnormal [Unknown]
  - Tremor [Unknown]
  - Overgrowth bacterial [Unknown]
